FAERS Safety Report 12230051 (Version 4)
Quarter: 2016Q3

REPORT INFORMATION
  Report Type: Report from Study
  Country: US (occurrence: US)
  Receive Date: 20160401
  Receipt Date: 20160701
  Transmission Date: 20161109
  Serious: No
  Sender: FDA-Public Use
  Company Number: US-AMGEN-USASL2016039485

PATIENT
  Age: 62 Year
  Sex: Female

DRUGS (2)
  1. PREDNISONE. [Concomitant]
     Active Substance: PREDNISONE
     Dosage: UNK
  2. ENBREL [Suspect]
     Active Substance: ETANERCEPT
     Indication: RHEUMATOID ARTHRITIS
     Dosage: 50 MG, QWK
     Route: 065
     Dates: start: 20160315

REACTIONS (16)
  - Pruritus [Unknown]
  - Drug ineffective [Unknown]
  - Finger deformity [Unknown]
  - Feeling hot [Unknown]
  - Rhinorrhoea [Unknown]
  - Arthritis [Unknown]
  - Rash erythematous [Unknown]
  - Injection site pain [Unknown]
  - Joint injury [Unknown]
  - Arthropod bite [Recovered/Resolved]
  - Hypersensitivity [Recovered/Resolved]
  - Fatigue [Unknown]
  - Arthralgia [Unknown]
  - Swelling face [Unknown]
  - Injection site extravasation [Unknown]
  - Nasopharyngitis [Recovering/Resolving]

NARRATIVE: CASE EVENT DATE: 2016
